FAERS Safety Report 10366929 (Version 1)
Quarter: 2014Q3

REPORT INFORMATION
  Report Type: Spontaneous
  Country: US (occurrence: US)
  Receive Date: 20140807
  Receipt Date: 20140807
  Transmission Date: 20150326
  Serious: No
  Sender: FDA-Public Use
  Company Number: US-AMGEN INC.-USASP2014059385

PATIENT
  Age: 27 Year
  Sex: Female

DRUGS (1)
  1. ENBREL [Suspect]
     Active Substance: ETANERCEPT
     Indication: RHEUMATOID ARTHRITIS
     Dosage: 50 MG, 1 INJECTION EVERY 2 WEEKS
     Route: 058
     Dates: start: 20140318, end: 2014

REACTIONS (2)
  - Drug hypersensitivity [Unknown]
  - Injection site reaction [Unknown]

NARRATIVE: CASE EVENT DATE: 2014
